FAERS Safety Report 7794162-6 (Version None)
Quarter: 2011Q4

REPORT INFORMATION
  Report Type: 
  Country: None (occurrence: None)
  Receive Date: 20111004
  Receipt Date: 20110926
  Transmission Date: 20120403
  Serious: Yes (Hospitalization)
  Sender: FDA-Public Use
  Company Number: US-US-EMD SERONO, INC.-7084837

PATIENT
  Sex: Female
  Weight: 83 kg

DRUGS (2)
  1. REBIF [Suspect]
     Indication: MULTIPLE SCLEROSIS
     Route: 058
     Dates: start: 20110307
  2. TYLENOL-500 [Concomitant]
     Indication: PREMEDICATION

REACTIONS (2)
  - POST PROCEDURAL COMPLICATION [None]
  - HEADACHE [None]
